FAERS Safety Report 10007511 (Version 2)
Quarter: 2014Q2

REPORT INFORMATION
  Report Type: Spontaneous
  Country: US (occurrence: US)
  Receive Date: 20140313
  Receipt Date: 20140612
  Transmission Date: 20141212
  Serious: Yes (Other)
  Sender: FDA-Public Use
  Company Number: US-PFIZER INC-2014070212

PATIENT
  Age: 75 Year
  Sex: Female
  Weight: 65 kg

DRUGS (6)
  1. LIPITOR [Suspect]
     Indication: LOW DENSITY LIPOPROTEIN INCREASED
     Dosage: 10 MG, DAILY
     Route: 048
     Dates: start: 20030113, end: 20071112
  2. LIPITOR [Suspect]
     Indication: CARDIOVASCULAR EVENT PROPHYLAXIS
     Dosage: 20 MG, DAILY
     Route: 048
     Dates: start: 20041025, end: 20120626
  3. LIPITOR [Suspect]
     Dosage: 30 MG, DAILY
     Route: 048
  4. LIPITOR [Suspect]
     Dosage: 40 MG, DAILY
     Route: 048
  5. LIPITOR [Suspect]
     Dosage: UNK
     Route: 048
     Dates: end: 201302
  6. BABY ASPIRIN [Concomitant]
     Indication: CARDIOVASCULAR EVENT PROPHYLAXIS
     Dosage: 80 MG, 1X/DAY (SINCE 10 YEARS AGO)

REACTIONS (4)
  - Type 2 diabetes mellitus [Not Recovered/Not Resolved]
  - Diabetic neuropathy [Not Recovered/Not Resolved]
  - Impaired driving ability [Unknown]
  - Diabetic vascular disorder [Not Recovered/Not Resolved]
